FAERS Safety Report 4775812-5 (Version None)
Quarter: 2005Q3

REPORT INFORMATION
  Report Type: 
  Country: None (occurrence: None)
  Receive Date: 20050922
  Receipt Date: 20050913
  Transmission Date: 20060218
  Serious: Yes (Death)
  Sender: FDA-Public Use
  Company Number: US-MERCK-0509USA02192

PATIENT
  Age: 45 Year

DRUGS (2)
  1. COZAAR [Suspect]
     Route: 048
  2. METFORMIN [Suspect]
     Route: 065

REACTIONS (1)
  - COMPLETED SUICIDE [None]
